FAERS Safety Report 4558004-4 (Version None)
Quarter: 2005Q1

REPORT INFORMATION
  Report Type: 
  Country: None (occurrence: None)
  Receive Date: 20050121
  Receipt Date: 20040428
  Transmission Date: 20050727
  Serious: Yes (Other)
  Sender: FDA-Public Use
  Company Number: US-BRISTOL-MYERS SQUIBB COMPANY-12574935

PATIENT
  Age: 25 Year
  Sex: Female

DRUGS (6)
  1. SERZONE [Suspect]
     Indication: DEPRESSION
     Route: 048
     Dates: start: 19980701
  2. XANAX [Concomitant]
  3. REMERON [Concomitant]
  4. VALIUM [Concomitant]
  5. EXCEDRIN (MIGRAINE) [Concomitant]
  6. ORTHO CYCLEN-28 [Concomitant]
     Indication: MENSTRUATION IRREGULAR

REACTIONS (1)
  - HEPATITIS B [None]
